FAERS Safety Report 7795656-X (Version None)
Quarter: 2011Q4

REPORT INFORMATION
  Report Type: 
  Country: None (occurrence: None)
  Receive Date: 20111004
  Receipt Date: 20110923
  Transmission Date: 20120403
  Serious: Yes (Hospitalization, Other)
  Sender: FDA-Public Use
  Company Number: FR-GLAXOSMITHKLINE-B0749843A

PATIENT
  Sex: Female

DRUGS (15)
  1. MEPROBAMATE [Suspect]
     Indication: INSOMNIA
     Dosage: 1UNIT PER DAY
     Route: 065
     Dates: start: 20110616, end: 20110808
  2. ATARAX [Concomitant]
     Indication: ANXIETY
     Dosage: 25MG THREE TIMES PER DAY
     Route: 048
     Dates: end: 20110808
  3. TERCIAN [Concomitant]
     Route: 048
     Dates: end: 20110807
  4. LEVOTHYROXINE SODIUM [Concomitant]
     Indication: HYPOTHYROIDISM
     Dosage: 200MCG UNKNOWN
     Route: 048
  5. FLUTICASONE PROPIONATE/SALMETEROL [Concomitant]
     Dosage: 1UNIT TWICE PER DAY
     Route: 055
     Dates: end: 20110808
  6. BACTRIM DS [Suspect]
     Indication: ANTIBIOTIC PROPHYLAXIS
     Dosage: 1TAB ALTERNATE DAYS
     Route: 048
     Dates: start: 20110616, end: 20110808
  7. ATHYMIL [Suspect]
     Indication: MAJOR DEPRESSION
     Dosage: 30MG PER DAY
     Route: 048
     Dates: start: 20110803, end: 20110808
  8. NEXIUM [Concomitant]
     Dosage: 40MG UNKNOWN
     Route: 048
  9. TOBRADEX [Concomitant]
     Dosage: 1DROP TWICE PER DAY
     Route: 047
     Dates: end: 20110818
  10. VALACYCLOVIR HYDROCHLORIDE [Suspect]
     Indication: PRODUCT USED FOR UNKNOWN INDICATION
     Dosage: 500MG TWICE PER DAY
     Route: 048
     Dates: start: 20110616, end: 20110808
  11. PREDNISOLONE [Concomitant]
     Dosage: 20MG PER DAY
     Route: 048
  12. NOCTAMIDE [Concomitant]
     Indication: INSOMNIA
     Dosage: 2MG PER DAY
     Route: 048
     Dates: end: 20110808
  13. OXAZEPAM [Concomitant]
     Dosage: 50MG PER DAY
     Route: 048
  14. OXYCODONE HCL [Concomitant]
     Indication: PAIN
     Dosage: 10MG SIX TIMES PER DAY
     Route: 048
     Dates: end: 20110808
  15. EFFEXOR [Concomitant]
     Indication: MAJOR DEPRESSION
     Dosage: 75MG THREE TIMES PER DAY
     Route: 048

REACTIONS (2)
  - PANCYTOPENIA [None]
  - AGRANULOCYTOSIS [None]
